FAERS Safety Report 7515436-X (Version None)
Quarter: 2011Q2

REPORT INFORMATION
  Report Type: 
  Country: None (occurrence: None)
  Receive Date: 20110601
  Receipt Date: 20110523
  Transmission Date: 20111010
  Serious: Yes (Hospitalization)
  Sender: FDA-Public Use
  Company Number: US-NOVOPROD-328700

PATIENT
  Sex: Female

DRUGS (4)
  1. NOVOLIN R [Suspect]
     Indication: TYPE 2 DIABETES MELLITUS
     Dosage: SLIDING SCALE
     Route: 058
     Dates: start: 20040101
  2. NITROGLYCERIN [Concomitant]
     Indication: ANGINA PECTORIS
     Dosage: AS NEEDED
     Route: 060
  3. LANTUS [Concomitant]
     Indication: TYPE 2 DIABETES MELLITUS
     Dosage: UNK
     Route: 058
  4. CLARITIN                           /00917501/ [Concomitant]
     Indication: HYPERSENSITIVITY

REACTIONS (2)
  - DYSPNOEA [None]
  - ANGINA PECTORIS [None]
